FAERS Safety Report 6198687-9 (Version None)
Quarter: 2009Q2

REPORT INFORMATION
  Report Type: 
  Country: None (occurrence: None)
  Receive Date: 20090519
  Receipt Date: 20090519
  Transmission Date: 20091009
  Serious: Yes (Life-Threatening)
  Sender: FDA-Public Use
  Company Number: None

PATIENT
  Sex: Male
  Weight: 93.8946 kg

DRUGS (3)
  1. XOLAIR [Suspect]
     Indication: ASTHMA
     Dosage: Q MONTH SQ
     Route: 058
  2. WELLBUTRIN [Concomitant]
  3. CHEMOTHERAPY -XL- [Concomitant]

REACTIONS (3)
  - BLADDER CANCER [None]
  - LUNG DISORDER [None]
  - NODULE [None]
